FAERS Safety Report 18487623 (Version 1)
Quarter: 2020Q4

REPORT INFORMATION
  Report Type: Spontaneous
  Country: US (occurrence: US)
  Receive Date: 20201110
  Receipt Date: 20201110
  Transmission Date: 20210114
  Serious: Yes (Hospitalization)
  Sender: FDA-Public Use
  Company Number: US-JNJFOC-A-NJ2019-191213

PATIENT
  Age: 70 Year
  Sex: Male
  Weight: 90.8 kg

DRUGS (3)
  1. ALEVE [Concomitant]
     Active Substance: NAPROXEN SODIUM
     Dosage: UNK, PRN
  2. OPSUMIT [Suspect]
     Active Substance: MACITENTAN
     Indication: PULMONARY ARTERIAL HYPERTENSION
     Dosage: 10 MG, QD
     Route: 048
     Dates: start: 201905
  3. TADALAFIL. [Concomitant]
     Active Substance: TADALAFIL

REACTIONS (18)
  - Asthenia [Unknown]
  - Hypersensitivity [Unknown]
  - Dizziness [Unknown]
  - Rhinorrhoea [Unknown]
  - Cough [Unknown]
  - Gastric ulcer [Unknown]
  - Transfusion [Unknown]
  - Vertigo [Unknown]
  - Unevaluable event [Unknown]
  - Chest pain [Unknown]
  - Weight decreased [Unknown]
  - Joint injury [Unknown]
  - Back pain [Unknown]
  - Hypotension [Unknown]
  - Sinus disorder [Unknown]
  - Ulcer haemorrhage [Unknown]
  - Nasopharyngitis [Unknown]
  - Pain in extremity [Unknown]

NARRATIVE: CASE EVENT DATE: 201905
